FAERS Safety Report 8129694-4 (Version None)
Quarter: 2012Q1

REPORT INFORMATION
  Report Type: 
  Country: None (occurrence: None)
  Receive Date: 20120103
  Receipt Date: 20111106
  Transmission Date: 20120608
  Serious: No
  Sender: FDA-Public Use
  Company Number: AE-2011-003145

PATIENT
  Age: 57 Year
  Sex: Male
  Weight: 77.1115 kg

DRUGS (3)
  1. PEGASYS [Concomitant]
  2. INCIVEK [Suspect]
     Dosage: 2250 MG (750 MG, 1 IN 8 HR), ORAL
     Route: 048
     Dates: start: 20111104
  3. RIBAVIRIN [Concomitant]

REACTIONS (5)
  - PAIN [None]
  - RASH PRURITIC [None]
  - RECTAL HAEMORRHAGE [None]
  - NAUSEA [None]
  - FATIGUE [None]
